FAERS Safety Report 11939158 (Version 1)
Quarter: 2016Q1

REPORT INFORMATION
  Report Type: Spontaneous
  Country: IN (occurrence: IN)
  Receive Date: 20160122
  Receipt Date: 20160122
  Transmission Date: 20160526
  Serious: Yes (Death, Hospitalization)
  Sender: FDA-Public Use
  Company Number: IN-SA-2016SA010985

PATIENT
  Age: 35 Year
  Sex: Male

DRUGS (2)
  1. WARFARIN SODIUM. [Suspect]
     Active Substance: WARFARIN SODIUM
     Indication: SUPERIOR SAGITTAL SINUS THROMBOSIS
     Route: 048
  2. ENOXAPARIN SODIUM. [Suspect]
     Active Substance: ENOXAPARIN SODIUM
     Indication: SUPERIOR SAGITTAL SINUS THROMBOSIS
     Route: 058

REACTIONS (2)
  - Treatment failure [Fatal]
  - Superior sagittal sinus thrombosis [Fatal]
